FAERS Safety Report 8532280-5 (Version None)
Quarter: 2012Q3

REPORT INFORMATION
  Report Type: 
  Country: None (occurrence: None)
  Receive Date: 20120724
  Receipt Date: 20120720
  Transmission Date: 20120928
  Serious: Yes (Hospitalization)
  Sender: FDA-Public Use
  Company Number: PHHO2011BR06065

PATIENT
  Sex: Female
  Weight: 62 kg

DRUGS (24)
  1. SYNTHROID [Concomitant]
     Indication: HYPOTHYROIDISM
     Dosage: 150 UG, QD
     Route: 048
     Dates: start: 20110218
  2. SIMVASTATIN [Concomitant]
     Indication: PROPHYLAXIS
     Dosage: 20 MG, BID
     Dates: start: 20110218
  3. AFINITOR [Suspect]
     Dosage: DOUBLE BLINDED
     Route: 048
     Dates: start: 20110420
  4. BLINDED NO TREATMENT RECEIVED [Suspect]
     Dosage: DOUBLE BLINDED
     Route: 048
     Dates: start: 20110420
  5. COMPARATOR TRASTUZUMAB [Suspect]
     Indication: BREAST CANCER METASTATIC
     Dosage: 2 MG/KG
     Route: 042
     Dates: start: 20101008, end: 20110331
  6. COMPARATOR TRASTUZUMAB [Suspect]
     Dosage: 2 MG/KG
     Route: 042
     Dates: start: 20110414
  7. PACLITAXEL [Suspect]
     Indication: BREAST CANCER METASTATIC
     Dosage: 80 MG/M2
     Route: 042
     Dates: start: 20101008, end: 20110331
  8. MORPHINE SULFATE [Concomitant]
     Indication: BACK PAIN
  9. VASOPRIL [Concomitant]
     Indication: HYPERTENSION
     Dosage: 10 MG, BID
     Route: 048
     Dates: start: 20040101
  10. ONDANSETRON [Concomitant]
     Indication: PROPHYLAXIS OF NAUSEA AND VOMITING
     Dosage: 80 MG, UNK
     Route: 048
     Dates: start: 20110328, end: 20110331
  11. PLACEBO [Suspect]
     Indication: BREAST CANCER METASTATIC
     Dosage: DOUBLE BLINDED
     Route: 048
     Dates: start: 20101008, end: 20110331
  12. DIAMICRON [Concomitant]
     Indication: DIABETES MELLITUS
     Dosage: 80 MG, BID
     Route: 048
     Dates: start: 20110218, end: 20110401
  13. NPH INSULIN [Concomitant]
     Indication: DIABETES MELLITUS
     Dosage: 10 IU, QD
     Route: 058
     Dates: start: 20110318, end: 20110401
  14. OMEPRAZOLE [Concomitant]
     Dosage: 40 MG, BID
     Route: 048
     Dates: start: 20110311, end: 20110331
  15. AFINITOR [Suspect]
     Indication: BREAST CANCER METASTATIC
     Dosage: DOUBLE BLINDED
     Route: 048
     Dates: start: 20101008, end: 20110331
  16. PLACEBO [Suspect]
     Dosage: DOUBLE BLINDED
     Route: 048
     Dates: start: 20110420
  17. HYDROCHLOROTHIAZIDE [Concomitant]
     Indication: HYPERTENSION
     Dosage: 25 MG, QD
     Route: 048
     Dates: start: 20110218, end: 20110401
  18. INSULIN [Concomitant]
     Indication: DIABETES MELLITUS
     Dosage: 4 IU, BID
     Route: 058
     Dates: start: 20110318, end: 20110331
  19. NPH INSULIN [Concomitant]
     Dosage: 6 IU, QD
     Dates: start: 20110318
  20. ACETYLSALICYLIC ACID SRT [Concomitant]
     Indication: PROPHYLAXIS
     Dosage: 200 MG, QD
     Route: 048
     Dates: start: 20110218, end: 20110401
  21. DIPYRONE [Concomitant]
     Indication: BACK PAIN
  22. BLINDED NO TREATMENT RECEIVED [Suspect]
     Indication: BREAST CANCER METASTATIC
     Dosage: DOUBLE BLINDED
     Route: 048
     Dates: start: 20101008, end: 20110331
  23. DIPYRONE [Concomitant]
     Indication: FLANK PAIN
  24. MORPHINE SULFATE [Concomitant]
     Indication: FLANK PAIN

REACTIONS (1)
  - CHOLECYSTITIS [None]
